FAERS Safety Report 9044724 (Version 1)
Quarter: 2013Q1

REPORT INFORMATION
  Report Type: Spontaneous
  Country: US (occurrence: US)
  Receive Date: 20130130
  Receipt Date: 20130130
  Transmission Date: 20140127
  Serious: No
  Sender: FDA-Public Use
  Company Number: US-ABBOTT-12P-163-0963737-00

PATIENT
  Sex: 0

DRUGS (2)
  1. HUMIRA 40 MG/ 0.8 ML PRE-FILLED SYRINGE [Suspect]
     Indication: PRODUCT USED FOR UNKNOWN INDICATION
     Route: 058
     Dates: start: 2007
  2. HUMIRA 40 MG/ 0.8 ML PRE-FILLED SYRINGE [Suspect]
     Route: 058

REACTIONS (7)
  - Dyspepsia [Unknown]
  - Abdominal pain upper [Unknown]
  - Nausea [Unknown]
  - Back pain [Unknown]
  - Diarrhoea [Recovered/Resolved]
  - Therapeutic product ineffective [Unknown]
  - Malaise [Unknown]
